FAERS Safety Report 4744159-5 (Version None)
Quarter: 2005Q3

REPORT INFORMATION
  Report Type: 
  Country: None (occurrence: None)
  Receive Date: 20050810
  Receipt Date: 20050810
  Transmission Date: 20060218
  Serious: Yes (Life-Threatening, Disabling)
  Sender: FDA-Public Use
  Company Number: None

PATIENT
  Age: 47 Year
  Sex: Female
  Weight: 55.7924 kg

DRUGS (6)
  1. CLONAZEPAM [Suspect]
     Indication: INSOMNIA
     Dosage: 2 PILLS @ BEDTIME
     Dates: start: 20040701, end: 20050101
  2. TEMAZEPAM [Suspect]
     Indication: INSOMNIA
     Dosage: 1 PILL @ BEDTIME
     Dates: start: 20040901, end: 20050301
  3. TRAZADONE [Concomitant]
  4. GABA [Concomitant]
  5. 5-HTP [Concomitant]
  6. MELATONIN [Concomitant]

REACTIONS (31)
  - AGORAPHOBIA [None]
  - ANOREXIA [None]
  - ANXIETY [None]
  - ARTHRALGIA [None]
  - COGNITIVE DISORDER [None]
  - CONDITION AGGRAVATED [None]
  - COORDINATION ABNORMAL [None]
  - DIARRHOEA [None]
  - DIZZINESS [None]
  - DRUG WITHDRAWAL SYNDROME [None]
  - DYSPHAGIA [None]
  - EAR PAIN [None]
  - FATIGUE [None]
  - FEELING ABNORMAL [None]
  - HEADACHE [None]
  - HYPERACUSIS [None]
  - HYPOGLYCAEMIA [None]
  - IMPAIRED DRIVING ABILITY [None]
  - IMPAIRED WORK ABILITY [None]
  - INSOMNIA [None]
  - MALAISE [None]
  - MORBID THOUGHTS [None]
  - NAUSEA [None]
  - NIGHT SWEATS [None]
  - PAIN IN EXTREMITY [None]
  - PALPITATIONS [None]
  - PANIC ATTACK [None]
  - PHOTOPHOBIA [None]
  - TINNITUS [None]
  - TOOTHACHE [None]
  - WEIGHT DECREASED [None]
